FAERS Safety Report 25185750 (Version 1)
Quarter: 2025Q2

REPORT INFORMATION
  Report Type: Spontaneous
  Country: CA (occurrence: CA)
  Receive Date: 20250410
  Receipt Date: 20250410
  Transmission Date: 20250716
  Serious: Yes (Other)
  Sender: ROCHE
  Company Number: CA-ROCHE-10000252069

PATIENT
  Age: 50 Year
  Sex: Female
  Weight: 106 kg

DRUGS (7)
  1. CLONAZEPAM [Suspect]
     Active Substance: CLONAZEPAM
     Indication: Restless legs syndrome
     Route: 065
  2. ACTEMRA [Suspect]
     Active Substance: TOCILIZUMAB
     Indication: Rheumatoid arthritis
     Route: 042
  3. ACTEMRA [Suspect]
     Active Substance: TOCILIZUMAB
     Route: 042
  4. ACTEMRA [Suspect]
     Active Substance: TOCILIZUMAB
     Route: 042
  5. ACTEMRA [Suspect]
     Active Substance: TOCILIZUMAB
     Route: 042
  6. ACTEMRA [Suspect]
     Active Substance: TOCILIZUMAB
     Route: 042
  7. ACTEMRA [Suspect]
     Active Substance: TOCILIZUMAB
     Route: 042

REACTIONS (18)
  - Blood pressure diastolic abnormal [Unknown]
  - Blood pressure systolic abnormal [Unknown]
  - Blood pressure systolic increased [Unknown]
  - Dehydration [Unknown]
  - Gastrointestinal procedural complication [Unknown]
  - Grip strength decreased [Unknown]
  - Heart rate decreased [Unknown]
  - Joint swelling [Unknown]
  - Loss of personal independence in daily activities [Unknown]
  - Malaise [Unknown]
  - Movement disorder [Unknown]
  - Off label use [Unknown]
  - Oxygen saturation decreased [Unknown]
  - Pain [Unknown]
  - Peripheral swelling [Unknown]
  - Sleep disorder [Unknown]
  - Urinary tract infection [Unknown]
  - Weight decreased [Unknown]
